FAERS Safety Report 5455341-6 (Version None)
Quarter: 2007Q3

REPORT INFORMATION
  Report Type: 
  Country: None (occurrence: None)
  Receive Date: 20070918
  Receipt Date: 20070914
  Transmission Date: 20080115
  Serious: Yes (Death, Life-Threatening, Hospitalization, Other)
  Sender: FDA-Public Use
  Company Number: HQWYE079210SEP07

PATIENT
  Sex: Female
  Weight: 88.2 kg

DRUGS (8)
  1. SIROLIMUS [Suspect]
     Indication: PROPHYLAXIS AGAINST TRANSPLANT REJECTION
     Route: 048
     Dates: start: 20040123, end: 20070909
  2. BEZAFIBRATE [Concomitant]
     Route: 048
     Dates: start: 20040224
  3. AMFETAMINIL [Concomitant]
  4. GLIMEPIRIDE [Concomitant]
     Route: 048
     Dates: start: 20041118
  5. OMEPRAZOLE [Concomitant]
     Route: 048
     Dates: start: 20010428
  6. EPOGEN [Concomitant]
     Route: 058
     Dates: start: 20051228
  7. ATENOLOL [Concomitant]
     Dosage: UNKNOWN
     Route: 048
     Dates: start: 20040830
  8. FLUOXETINE [Concomitant]
     Route: 048
     Dates: start: 20041217

REACTIONS (2)
  - MULTI-ORGAN FAILURE [None]
  - SEPTIC SHOCK [None]
